FAERS Safety Report 18883628 (Version 1)
Quarter: 2021Q1

REPORT INFORMATION
  Report Type: Spontaneous
  Country: US (occurrence: US)
  Receive Date: 20210211
  Receipt Date: 20210211
  Transmission Date: 20210420
  Serious: Yes (Other)
  Sender: FDA-Public Use
  Company Number: US-TEVA-2021-US-1877572

PATIENT
  Age: 42 Year
  Sex: Male

DRUGS (6)
  1. TRANEXAMIC ACID. [Suspect]
     Active Substance: TRANEXAMIC ACID
     Indication: PROPHYLAXIS
     Dosage: USED INTRAOPERATIVELY
     Route: 065
  2. RECOMBINANT FACTOR VIIA [Suspect]
     Active Substance: COAGULATION FACTOR VIIA RECOMBINANT HUMAN
     Indication: PROPHYLAXIS
     Dosage: USED INTRAOPERATIVELY
     Route: 065
  3. PROTHROMBIN COMPLEX CONCENTRATE NOS [Suspect]
     Active Substance: COAGULATION FACTOR IX HUMAN\COAGULATION FACTOR VII HUMAN\COAGULATION FACTOR X HUMAN\PROTHROMBIN
     Indication: PROPHYLAXIS
     Dosage: 2196 UNITS; USED INTRAOPERATIVELY
     Route: 065
  4. THROMBIN [Suspect]
     Active Substance: THROMBIN
     Indication: PROPHYLAXIS
     Dosage: 40000 UNITS; USED INTRAOPERATIVELY
     Route: 061
  5. PROTAMINE [Suspect]
     Active Substance: PROTAMINE
     Indication: PROPHYLAXIS
     Dosage: USED INTRAOPERATIVELY
     Route: 065
  6. FIBRINOGEN CONCENTRATE (HUMAN) [Suspect]
     Active Substance: FIBRINOGEN HUMAN
     Indication: PROPHYLAXIS
     Dosage: USED INTRAOPERATIVELY
     Route: 065

REACTIONS (3)
  - Off label use [Unknown]
  - Haemorrhage [Unknown]
  - Acute kidney injury [Unknown]
